FAERS Safety Report 15410564 (Version 1)
Quarter: 2018Q3

REPORT INFORMATION
  Report Type: Spontaneous
  Country: JP (occurrence: JP)
  Receive Date: 20180921
  Receipt Date: 20180921
  Transmission Date: 20181010
  Serious: Yes (Other)
  Sender: FDA-Public Use
  Company Number: JP-009507513-1809JPN009162

PATIENT
  Sex: Male

DRUGS (7)
  1. LUNESTA [Concomitant]
     Active Substance: ESZOPICLONE
  2. BELSOMRA [Concomitant]
     Active Substance: SUVOREXANT
  3. SITAGLIPTIN PHOSPHATE [Suspect]
     Active Substance: SITAGLIPTIN PHOSPHATE
     Indication: TYPE 2 DIABETES MELLITUS
     Dosage: UNK
     Route: 048
     Dates: start: 20180628, end: 20180907
  4. TRYPTANOL [Concomitant]
     Active Substance: AMITRIPTYLINE
  5. ROZEREM [Concomitant]
     Active Substance: RAMELTEON
  6. MAGMITT [Concomitant]
     Active Substance: MAGNESIUM OXIDE
  7. RENIVACE [Concomitant]
     Active Substance: ENALAPRIL

REACTIONS (1)
  - Rhabdomyolysis [Unknown]
